FAERS Safety Report 4986826-4 (Version None)
Quarter: 2006Q2

REPORT INFORMATION
  Report Type: 
  Country: None (occurrence: None)
  Receive Date: 20060428
  Receipt Date: 20060207
  Transmission Date: 20061013
  Serious: Yes (Life-Threatening, Hospitalization, Disabling)
  Sender: FDA-Public Use
  Company Number: PL-MERCK-0602POL00005

PATIENT
  Sex: Female

DRUGS (14)
  1. VIOXX [Suspect]
     Indication: OSTEOARTHRITIS
     Route: 048
     Dates: start: 20010701, end: 20041001
  2. VIOXX [Suspect]
     Route: 048
     Dates: start: 20010101, end: 20010601
  3. BIPERIDEN HYDROCHLORIDE [Concomitant]
     Indication: PARKINSON'S DISEASE
     Route: 065
  4. BENSERAZIDE HYDROCHLORIDE AND LEVODOPA [Concomitant]
     Indication: PARKINSON'S DISEASE
     Route: 065
  5. TIANEPTINE SODIUM [Concomitant]
     Indication: DEPRESSION
     Route: 065
  6. RANITIDINE [Concomitant]
     Route: 065
  7. KETOPROFEN [Concomitant]
     Indication: PAIN
     Route: 065
  8. IRON (UNSPECIFIED) [Concomitant]
     Indication: ANAEMIA
     Route: 065
  9. DICLOFENAC SODIUM [Concomitant]
     Route: 065
  10. FUROSEMIDE [Concomitant]
     Route: 065
  11. DOXEPIN HYDROCHLORIDE [Concomitant]
     Route: 065
  12. METILDIGOXIN [Concomitant]
     Route: 065
  13. PYRIDOXINE [Concomitant]
     Route: 065
  14. POTASSIUM (UNSPECIFIED) [Concomitant]
     Route: 065

REACTIONS (34)
  - ABDOMINAL PAIN [None]
  - ARRHYTHMIA [None]
  - ASTHENIA [None]
  - BALANCE DISORDER [None]
  - BLOOD PRESSURE FLUCTUATION [None]
  - CARDIOVASCULAR DISORDER [None]
  - CEREBRAL ARTERIOSCLEROSIS [None]
  - DEMENTIA ALZHEIMER'S TYPE [None]
  - DEMYELINATION [None]
  - DEPRESSION [None]
  - DILATATION VENTRICULAR [None]
  - DISORIENTATION [None]
  - DISTURBANCE IN ATTENTION [None]
  - DYSKINESIA [None]
  - DYSPNOEA [None]
  - GENERAL PHYSICAL HEALTH DETERIORATION [None]
  - HYPERTENSION [None]
  - IRON DEFICIENCY ANAEMIA [None]
  - ISCHAEMIC CARDIOMYOPATHY [None]
  - MALAISE [None]
  - MOVEMENT DISORDER [None]
  - MYOCARDIAL ISCHAEMIA [None]
  - NAUSEA [None]
  - OEDEMA PERIPHERAL [None]
  - PALPITATIONS [None]
  - PARALYSIS [None]
  - PARKINSON'S DISEASE [None]
  - PSYCHOTIC DISORDER DUE TO A GENERAL MEDICAL CONDITION [None]
  - RASH [None]
  - RHEUMATOID ARTHRITIS [None]
  - SYNCOPE [None]
  - TINNITUS [None]
  - WEIGHT DECREASED [None]
  - WRONG TECHNIQUE IN DRUG USAGE PROCESS [None]
